FAERS Safety Report 6194793-3 (Version None)
Quarter: 2009Q2

REPORT INFORMATION
  Report Type: 
  Country: None (occurrence: None)
  Receive Date: 20090519
  Receipt Date: 20070417
  Transmission Date: 20091009
  Serious: Yes (Hospitalization)
  Sender: FDA-Public Use
  Company Number: US-ASTRAZENECA-2006UW22651

PATIENT
  Age: 19378 Day
  Sex: Female
  Weight: 99.8 kg

DRUGS (24)
  1. SEROQUEL [Suspect]
     Indication: SLEEP DISORDER
     Route: 048
     Dates: start: 19970101, end: 20040101
  2. SEROQUEL [Suspect]
     Dosage: 100 MG-300 MG
     Route: 048
     Dates: start: 20040616, end: 20060222
  3. DESYREL [Concomitant]
     Dosage: 100 MG AT NIGHT, 50 MG AT NIGHT
     Route: 065
  4. LEXAPRO [Concomitant]
     Dosage: 20 MG EVERY MORNING AND 10 MG AT AFTERNOON, 10 MG EVERY MORNING AND 10 MG AT AFTERNOON
     Route: 065
  5. CYMBALTA [Concomitant]
     Route: 065
     Dates: end: 20050518
  6. EFFEXOR XR [Concomitant]
     Indication: DEPRESSION
     Route: 065
  7. ATIVAN [Concomitant]
     Indication: ANXIETY
     Route: 065
  8. LUNESTA [Concomitant]
     Indication: SLEEP DISORDER
     Route: 065
  9. DALMANE [Concomitant]
     Indication: INSOMNIA
     Route: 065
  10. AVANDIA [Concomitant]
     Dosage: 4 MG BID, 4 MG TWO TABLETS DAILY, 4 MG DAILY
     Route: 048
  11. ACCUPRIL [Concomitant]
     Dosage: 40 MG DAILY, 20 MG BID, 20 MG DAILY
     Route: 048
  12. VISTARIL [Concomitant]
     Dosage: 25 MG AS OCCASION REQUIRES, 25 MG TID
     Route: 048
  13. LASIX [Concomitant]
     Route: 048
  14. LASIX [Concomitant]
     Route: 042
     Dates: start: 20010405
  15. MAALOX PLUS [Concomitant]
     Indication: DYSPEPSIA
     Dosage: 15 ML AS NEEDED
     Route: 048
     Dates: start: 20010404
  16. NOVOLIN R [Concomitant]
     Dosage: 28 UNIT IN AM-14 UNIT IN PM, 4 UNIT SLIDING SCALE, 14 UNIT OD, 100 UNIT QID, 10 UNIT OD, 20 UNIT OD
     Route: 058
     Dates: start: 20010404
  17. ANTIVERT [Concomitant]
     Dosage: 20 MG EVERY 8 HOUR AS OCCASION REQUIRES
     Route: 048
     Dates: start: 20010404
  18. DARVOCET [Concomitant]
     Route: 065
     Dates: start: 20010404
  19. ASPIRIN [Concomitant]
     Route: 048
  20. ZANTAC [Concomitant]
     Route: 048
  21. OCUFLOX DROPS [Concomitant]
     Route: 065
  22. PILOCARPINE DROPS [Concomitant]
     Route: 065
  23. EPIFRIN DROPS [Concomitant]
     Route: 065
  24. ATROPINE DROPS [Concomitant]
     Route: 065

REACTIONS (24)
  - ABDOMINAL PAIN UPPER [None]
  - ANAEMIA [None]
  - ANXIETY [None]
  - AORTIC VALVE INCOMPETENCE [None]
  - ARTHRALGIA [None]
  - BRONCHITIS [None]
  - CARDIAC FAILURE CONGESTIVE [None]
  - CATARACT OPERATION [None]
  - CHEST PAIN [None]
  - CHRONIC OBSTRUCTIVE PULMONARY DISEASE [None]
  - COUGH [None]
  - DEPRESSION [None]
  - DIABETES MELLITUS INADEQUATE CONTROL [None]
  - DYSPNOEA [None]
  - EPISTAXIS [None]
  - HEADACHE [None]
  - HYPERGLYCAEMIA [None]
  - HYPERKALAEMIA [None]
  - HYPERLIPIDAEMIA [None]
  - HYPERTENSIVE HEART DISEASE [None]
  - MUSCULOSKELETAL CHEST PAIN [None]
  - OROPHARYNGEAL PAIN [None]
  - PAIN IN EXTREMITY [None]
  - PYREXIA [None]
